FAERS Safety Report 10265894 (Version 1)
Quarter: 2014Q2

REPORT INFORMATION
  Report Type: Spontaneous
  Country: US (occurrence: US)
  Receive Date: 20140627
  Receipt Date: 20140627
  Transmission Date: 20141212
  Serious: Yes (Hospitalization, Other)
  Sender: FDA-Public Use
  Company Number: US-BAYER-2014-094812

PATIENT
  Age: 33 Year
  Sex: Female
  Weight: 82.1 kg

DRUGS (12)
  1. YAZ [Suspect]
  2. YASMIN [Suspect]
     Dosage: UNK
  3. OCELLA [Suspect]
     Dosage: UNK
  4. OCELLA [Suspect]
     Dosage: UNK
     Dates: start: 20100616
  5. OCELLA [Suspect]
     Dosage: UNK
     Dates: start: 20110324
  6. OCELLA [Suspect]
     Dosage: UNK
     Dates: start: 20110919
  7. OCELLA [Suspect]
     Dosage: UNK
     Dates: start: 20120103
  8. INSULIN [Concomitant]
     Indication: DIABETES MELLITUS
  9. ALBUTEROL [Concomitant]
  10. SINGULAIR [Concomitant]
  11. OMEPRAZOLE [Concomitant]
  12. AMBIEN [Concomitant]

REACTIONS (2)
  - Biliary dyskinesia [None]
  - Thrombophlebitis superficial [Recovered/Resolved]
